FAERS Safety Report 4776707-3 (Version None)
Quarter: 2005Q3

REPORT INFORMATION
  Report Type: 
  Country: None (occurrence: None)
  Receive Date: 20050923
  Receipt Date: 20050912
  Transmission Date: 20060218
  Serious: Yes (Death)
  Sender: FDA-Public Use
  Company Number: US-JNJFOC-20031004118

PATIENT
  Sex: Female

DRUGS (8)
  1. INFLIXIMAB [Suspect]
     Route: 042
  2. INFLIXIMAB [Suspect]
     Indication: RHEUMATOID ARTHRITIS
     Route: 042
  3. DURAGESIC-50 [Concomitant]
     Route: 062
  4. CALCIUM GLUCONATE [Concomitant]
  5. HYDROCODONE [Concomitant]
     Dosage: 1-2 TABS AS NEEDED.
  6. PREDNISONE [Concomitant]
  7. FOLIC ACID [Concomitant]
  8. DETROL LA [Concomitant]

REACTIONS (1)
  - CARDIAC FAILURE CONGESTIVE [None]
